FAERS Safety Report 6674427-1 (Version None)
Quarter: 2010Q2

REPORT INFORMATION
  Report Type: 
  Country: None (occurrence: None)
  Receive Date: 20100409
  Receipt Date: 20100329
  Transmission Date: 20101027
  Serious: Yes (Other)
  Sender: FDA-Public Use
  Company Number: PHHY2010CA19555

PATIENT
  Sex: Male

DRUGS (1)
  1. RASILEZ [Suspect]
     Dosage: 150 MG, 1 TIME PER DAY

REACTIONS (1)
  - BLOOD GLUCOSE INCREASED [None]
